FAERS Safety Report 9525251 (Version 1)
Quarter: 2013Q1

REPORT INFORMATION
  Report Type: Spontaneous
  Country: US (occurrence: None)
  Receive Date: 20130314
  Receipt Date: 20130314
  Transmission Date: 20140127
  Serious: No
  Sender: FDA-Public Use
  Company Number: 1028USA008878

PATIENT
  Age: 58 Year
  Sex: Male

DRUGS (3)
  1. PEGINTRON (PEGINTERFERON ALFA-2B) POWDER FOR INJECTION [Suspect]
     Indication: HEPATITIS C
     Dates: start: 20120622
  2. RIBAVIRIN (RIBAVIRIN) CAPSULE [Suspect]
     Dates: start: 20120622
  3. VICTRELIS (BOCEPREVIR) CAPSULE [Suspect]
     Indication: HEPATITIS C
     Dates: start: 20120721

REACTIONS (5)
  - Eye swelling [None]
  - Rash erythematous [None]
  - Dry skin [None]
  - Eczema [None]
  - Pruritus [None]
